FAERS Safety Report 6212235-6 (Version None)
Quarter: 2009Q2

REPORT INFORMATION
  Report Type: 
  Country: None (occurrence: None)
  Receive Date: 20090529
  Receipt Date: 20090518
  Transmission Date: 20091009
  Serious: Yes (Life-Threatening, Hospitalization, Disabling, Other)
  Sender: FDA-Public Use
  Company Number: 276028

PATIENT
  Age: 60 Year
  Sex: Male

DRUGS (1)
  1. HEPARIN SODIUM [Suspect]
     Indication: ANTICOAGULANT THERAPY

REACTIONS (10)
  - CYANOSIS [None]
  - FOOT AMPUTATION [None]
  - HEPARIN-INDUCED THROMBOCYTOPENIA [None]
  - HEPATOCELLULAR INJURY [None]
  - MULTI-ORGAN FAILURE [None]
  - NECROSIS [None]
  - RENAL FAILURE [None]
  - RESPIRATORY FAILURE [None]
  - THROMBOSIS [None]
  - TOE AMPUTATION [None]
